FAERS Safety Report 5642612-3 (Version None)
Quarter: 2008Q1

REPORT INFORMATION
  Report Type: 
  Country: None (occurrence: None)
  Receive Date: 20080226
  Receipt Date: 20080220
  Transmission Date: 20080703
  Serious: Yes (Hospitalization)
  Sender: FDA-Public Use
  Company Number: GXKR2008DE00461

PATIENT
  Age: 68 Year
  Sex: Male
  Weight: 88 kg

DRUGS (1)
  1. PREDNISON HEXAL (NGC)(PREDNISONE) TABLET, 20MG [Suspect]
     Indication: MUSCULOSKELETAL PAIN
     Dosage: 20 MG, ORAL
     Route: 048
     Dates: start: 20060101

REACTIONS (3)
  - EROSIVE DUODENITIS [None]
  - PANCREATIC CARCINOMA [None]
  - PANCREATITIS CHRONIC [None]
